FAERS Safety Report 8290770-7 (Version None)
Quarter: 2012Q2

REPORT INFORMATION
  Report Type: 
  Country: None (occurrence: None)
  Receive Date: 20120413
  Receipt Date: 20120413
  Transmission Date: 20120825
  Serious: Yes (Hospitalization, Disabling)
  Sender: FDA-Public Use
  Company Number: None

PATIENT

DRUGS (4)
  1. FOSAMAX [Suspect]
     Indication: OSTEOPOROSIS
     Dosage: 1 TABLET-AM W/8
     Dates: start: 20091101, end: 20100401
  2. FOSAMAX [Suspect]
     Indication: BONE LOSS
     Dosage: 1 TABLET-AM W/8
     Dates: start: 20091101, end: 20100401
  3. BONIVA [Suspect]
     Indication: OSTEOPOROSIS
     Dosage: 1 TABLET ONCE MONTHLY
     Dates: start: 20100501, end: 20111001
  4. BONIVA [Suspect]
     Indication: BONE LOSS
     Dosage: 1 TABLET ONCE MONTHLY
     Dates: start: 20100501, end: 20111001

REACTIONS (5)
  - ARTHRALGIA [None]
  - ASTHENIA [None]
  - GASTRIC ULCER [None]
  - EROSIVE OESOPHAGITIS [None]
  - BACK PAIN [None]
